FAERS Safety Report 15843944 (Version 2)
Quarter: 2019Q1

REPORT INFORMATION
  Report Type: Report from Study
  Country: US (occurrence: US)
  Receive Date: 20190118
  Receipt Date: 20190131
  Transmission Date: 20190417
  Serious: Yes (Hospitalization)
  Sender: FDA-Public Use
  Company Number: US-GILEAD-2019-0385447

PATIENT
  Age: 62 Year
  Sex: Female

DRUGS (1)
  1. RANOLAZINE. [Suspect]
     Active Substance: RANOLAZINE
     Indication: ANGINA PECTORIS
     Dosage: 1000 MG, BID
     Route: 048
     Dates: start: 2016

REACTIONS (3)
  - Lower limb fracture [Not Recovered/Not Resolved]
  - Fall [Recovered/Resolved]
  - Tibia fracture [Unknown]

NARRATIVE: CASE EVENT DATE: 20181227
